FAERS Safety Report 7385270-2 (Version None)
Quarter: 2011Q1

REPORT INFORMATION
  Report Type: 
  Country: None (occurrence: None)
  Receive Date: 20110330
  Receipt Date: 20100311
  Transmission Date: 20110831
  Serious: No
  Sender: FDA-Public Use
  Company Number: US-MYLANLABS-2010S1003145

PATIENT
  Age: 40 Year
  Sex: Female
  Weight: 81.65 kg

DRUGS (3)
  1. KLONOPIN [Concomitant]
  2. EMSAM [Suspect]
     Indication: DEPRESSION
     Dosage: Q24H
     Route: 062
  3. LAMICTAL [Concomitant]

REACTIONS (3)
  - PARAESTHESIA [None]
  - HYPOAESTHESIA [None]
  - INSOMNIA [None]
